FAERS Safety Report 4643882-0 (Version None)
Quarter: 2005Q2

REPORT INFORMATION
  Report Type: 
  Country: None (occurrence: None)
  Receive Date: 20050425
  Receipt Date: 20050415
  Transmission Date: 20051028
  Serious: Yes (Other)
  Sender: FDA-Public Use
  Company Number: US-GLAXOSMITHKLINE-A0554438A

PATIENT
  Age: 57 Year
  Sex: Female

DRUGS (6)
  1. TUMS E-X ASSORTED [Suspect]
     Route: 048
     Dates: start: 19790101
  2. COZAAR [Concomitant]
     Dosage: 50MG TWICE PER DAY
     Route: 048
  3. CHLORTHALIDONE [Concomitant]
     Dosage: 25MG TWICE PER DAY
     Route: 048
  4. PAROXETINE HCL [Concomitant]
     Indication: PANIC ATTACK
     Dosage: 20MG PER DAY
     Route: 048
  5. ALLERGY INJECTIONS [Concomitant]
     Route: 058
  6. POTASSIUM CHLORIDE [Concomitant]
     Indication: THERAPEUTIC PROCEDURE
     Dosage: 10MEQ SIX TIMES PER DAY
     Route: 048

REACTIONS (2)
  - DIABETES MELLITUS NON-INSULIN-DEPENDENT [None]
  - NEPHROLITHIASIS [None]
